FAERS Safety Report 21182770 (Version 1)
Quarter: 2022Q3

REPORT INFORMATION
  Report Type: Spontaneous
  Country: CN (occurrence: CN)
  Receive Date: 20220808
  Receipt Date: 20220808
  Transmission Date: 20221026
  Serious: Yes (Other)
  Sender: FDA-Public Use
  Company Number: CN-BAXTER-2022BAX016670

PATIENT
  Age: 57 Year
  Sex: Female
  Weight: 62 kg

DRUGS (2)
  1. CYCLOPHOSPHAMIDE [Suspect]
     Active Substance: CYCLOPHOSPHAMIDE
     Indication: Breast cancer female
     Dosage: 0.8 G,ONCE A DAY,CYCLOPHOSPHAMIDE(0.8G) + 0.9% SODIUM CHLORIDE(250ML)
     Route: 041
     Dates: start: 20220727, end: 20220727
  2. SODIUM CHLORIDE [Suspect]
     Active Substance: SODIUM CHLORIDE
     Indication: Medication dilution
     Dosage: 250  ML,ONCE A DAY,CYCLOPHOSPHAMIDE(0.8G) + 0.9% SODIUM CHLORIDE(250ML)
     Route: 041
     Dates: start: 20220727, end: 20220727

REACTIONS (2)
  - Asphyxia [Recovered/Resolved]
  - Chest discomfort [Recovered/Resolved]

NARRATIVE: CASE EVENT DATE: 20220727
